FAERS Safety Report 7654417-2 (Version None)
Quarter: 2011Q3

REPORT INFORMATION
  Report Type: 
  Country: None (occurrence: None)
  Receive Date: 20110803
  Receipt Date: 20110725
  Transmission Date: 20111222
  Serious: Yes (Other)
  Sender: FDA-Public Use
  Company Number: US-ASTRAZENECA-2011SE33020

PATIENT
  Age: 64 Year
  Sex: Female

DRUGS (4)
  1. NEXIUM [Suspect]
     Route: 048
  2. GAVASTAN [Concomitant]
  3. PRILOSEC OTC [Suspect]
     Route: 048
  4. NEXIUM [Suspect]
     Route: 048

REACTIONS (6)
  - OROPHARYNGEAL DISCOMFORT [None]
  - LARYNGEAL INFLAMMATION [None]
  - DRUG INEFFECTIVE [None]
  - ABDOMINAL PAIN [None]
  - GASTROINTESTINAL HAEMORRHAGE [None]
  - DYSPHAGIA [None]
